FAERS Safety Report 23571915 (Version 1)
Quarter: 2024Q1

REPORT INFORMATION
  Report Type: Spontaneous
  Country: GB (occurrence: GB)
  Receive Date: 20240227
  Receipt Date: 20240227
  Transmission Date: 20240410
  Serious: Yes (Other)
  Sender: FDA-Public Use
  Company Number: GB-002147023-NVSC2024GB036296

PATIENT
  Sex: Male

DRUGS (2)
  1. ASCIMINIB [Suspect]
     Active Substance: ASCIMINIB
     Indication: Product used for unknown indication
     Dosage: UNK
     Route: 065
     Dates: start: 202307
  2. IMATINIB [Suspect]
     Active Substance: IMATINIB
     Indication: Product used for unknown indication
     Dosage: UNK
     Route: 065

REACTIONS (7)
  - Cytopenia [Unknown]
  - Thrombocytopenia [Unknown]
  - Philadelphia chromosome positive [Unknown]
  - Gastrointestinal toxicity [Unknown]
  - Fatigue [Unknown]
  - Drug intolerance [Unknown]
  - Drug ineffective [Unknown]
